FAERS Safety Report 20462612 (Version 1)
Quarter: 2022Q1

REPORT INFORMATION
  Report Type: Spontaneous
  Country: None (occurrence: US)
  Receive Date: 20220211
  Receipt Date: 20220211
  Transmission Date: 20220424
  Serious: Yes (Hospitalization, Other)
  Sender: FDA-Public Use
  Company Number: US-Sunstar Americas Inc.-2125810

PATIENT
  Sex: Male
  Weight: 47.0 kg

DRUGS (111)
  1. PAROEX [Suspect]
     Active Substance: CHLORHEXIDINE GLUCONATE
     Indication: Pharyngitis
     Route: 002
     Dates: start: 202007, end: 20201028
  2. ACETAZOLAMIDE [Concomitant]
     Active Substance: ACETAZOLAMIDE
     Route: 002
     Dates: start: 20200807, end: 20200807
  3. ACETAZOLAMIDE [Concomitant]
     Active Substance: ACETAZOLAMIDE
     Route: 042
     Dates: start: 20200808, end: 20200820
  4. ALBUMINAR-25 [Concomitant]
     Active Substance: ALBUMIN HUMAN
     Route: 042
     Dates: start: 20200814, end: 20200925
  5. ALBUMINAR-5 [Concomitant]
     Active Substance: ALBUMIN HUMAN
     Route: 042
     Dates: start: 20200731, end: 20201009
  6. IPRATROPIUM BROMIDE AND ALBUTEROL SULFATE [Concomitant]
     Active Substance: ALBUTEROL SULFATE\IPRATROPIUM BROMIDE
     Route: 055
     Dates: start: 20200815, end: 20201003
  7. ALPRAZOLAM [Concomitant]
     Active Substance: ALPRAZOLAM
     Route: 002
     Dates: start: 20200930, end: 20201013
  8. ALPRAZOLAM [Concomitant]
     Active Substance: ALPRAZOLAM
     Route: 002
     Dates: start: 20200912, end: 20201013
  9. AMPICILLIN AND SULBACTAM [Concomitant]
     Active Substance: AMPICILLIN SODIUM\SULBACTAM SODIUM
     Route: 042
     Dates: start: 20200822, end: 20200823
  10. ASPIRIN [Concomitant]
     Active Substance: ASPIRIN
     Route: 002
     Dates: start: 20200808, end: 20201013
  11. ATOVAQUONE [Concomitant]
     Active Substance: ATOVAQUONE
     Route: 002
     Dates: start: 20201005, end: 20201013
  12. AZITHROMYCIN DIHYDRATE [Concomitant]
     Active Substance: AZITHROMYCIN DIHYDRATE
     Route: 042
     Dates: start: 20200731, end: 20200802
  13. AMPICILLIN SODIUM [Concomitant]
     Active Substance: AMPICILLIN SODIUM
     Route: 042
     Dates: start: 20200823, end: 20200828
  14. ARTIFICIAL TEARS [Concomitant]
     Active Substance: GLYCERIN\HYPROMELLOSES\POLYETHYLENE GLYCOL 400
     Route: 047
     Dates: start: 20200730, end: 20200811
  15. DEXMEDETOMIDINE HYDROCHLORIDE [Concomitant]
     Active Substance: DEXMEDETOMIDINE HYDROCHLORIDE
     Route: 042
     Dates: start: 20200810, end: 20200810
  16. DEXMEDETOMIDINE HYDROCHLORIDE [Concomitant]
     Active Substance: DEXMEDETOMIDINE HYDROCHLORIDE
     Route: 042
     Dates: start: 20200810, end: 20200927
  17. CEFEPIME [Concomitant]
     Active Substance: CEFEPIME HYDROCHLORIDE
     Route: 042
     Dates: start: 20200805, end: 20200919
  18. BACIIM [Concomitant]
     Active Substance: BACITRACIN
     Route: 030
     Dates: start: 20200908, end: 20200908
  19. TRYPSIN COMPLEX [Concomitant]
     Active Substance: BALSAM PERU\CASTOR OIL\TRYPSIN
     Route: 061
     Dates: start: 20200924, end: 20201003
  20. BUMETANIDE [Concomitant]
     Active Substance: BUMETANIDE
     Route: 042
     Dates: start: 20200822, end: 20200823
  21. DEXTROSE MONOHYDRATE [Concomitant]
     Active Substance: DEXTROSE MONOHYDRATE
     Route: 042
     Dates: start: 20200731, end: 20200731
  22. DEXTROSE [Concomitant]
     Active Substance: DEXTROSE
     Route: 042
     Dates: start: 20200808, end: 20200922
  23. DEXTROSE MONOHYDRATE [Concomitant]
     Active Substance: DEXTROSE MONOHYDRATE
     Route: 042
     Dates: start: 20200731, end: 20201013
  24. DEXTROSE [Concomitant]
     Active Substance: DEXTROSE
     Route: 042
     Dates: start: 20200805, end: 20200818
  25. DEXTROSE MONOHYDRATE [Concomitant]
     Active Substance: DEXTROSE MONOHYDRATE
     Route: 042
     Dates: start: 20200812, end: 20200813
  26. BUMETANIDE [Concomitant]
     Active Substance: BUMETANIDE
     Route: 042
     Dates: start: 20200822, end: 20200823
  27. CALCIUM CHLORIDE [Concomitant]
     Active Substance: CALCIUM CHLORIDE
     Route: 042
     Dates: start: 20200820, end: 20201008
  28. CALCIUM GLUCONATE [Concomitant]
     Active Substance: CALCIUM GLUCONATE
     Route: 042
     Dates: start: 20200731, end: 20200731
  29. CISATRACURIUM BESYLATE [Concomitant]
     Active Substance: CISATRACURIUM BESYLATE
     Route: 042
     Dates: start: 20200730, end: 20200808
  30. CISATRACURIUM BESYLATE [Concomitant]
     Active Substance: CISATRACURIUM BESYLATE
     Route: 042
     Dates: start: 20200731, end: 20200731
  31. CHLOROTHIAZIDE SODIUM [Concomitant]
     Active Substance: CHLOROTHIAZIDE SODIUM
     Route: 042
     Dates: start: 20200807, end: 20200823
  32. CEFAZOLIN SODIUM [Concomitant]
     Active Substance: CEFAZOLIN SODIUM
     Route: 042
     Dates: start: 20200819, end: 20200821
  33. CEFAZOLIN SODIUM [Concomitant]
     Active Substance: CEFAZOLIN SODIUM
     Route: 042
     Dates: start: 20200731, end: 20200819
  34. CEFTRIAXONE [Concomitant]
     Active Substance: CEFTRIAXONE
     Route: 042
     Dates: start: 20200731, end: 20200731
  35. CLONAZEPAM [Concomitant]
     Active Substance: CLONAZEPAM
     Route: 002
     Dates: start: 20200814, end: 20200815
  36. CLONAZEPAM [Concomitant]
     Active Substance: CLONAZEPAM
     Route: 002
     Dates: start: 20200815, end: 20200915
  37. VANCOMYCIN HYDROCHLORIDE [Concomitant]
     Active Substance: VANCOMYCIN HYDROCHLORIDE
     Route: 042
     Dates: start: 20200813, end: 20200920
  38. VANCOMYCIN HYDROCHLORIDE [Concomitant]
     Active Substance: VANCOMYCIN HYDROCHLORIDE
     Route: 042
     Dates: start: 20200806, end: 20200905
  39. VANCOMYCIN HYDROCHLORIDE [Concomitant]
     Active Substance: VANCOMYCIN HYDROCHLORIDE
     Route: 042
     Dates: start: 20200805, end: 20200828
  40. VANCOMYCIN HYDROCHLORIDE [Concomitant]
     Active Substance: VANCOMYCIN HYDROCHLORIDE
     Route: 042
     Dates: start: 20200812, end: 20200812
  41. CEFAZOLIN SODIUM [Concomitant]
     Active Substance: CEFAZOLIN SODIUM
     Route: 042
     Dates: start: 20200909, end: 20200909
  42. ADRENALIN [Concomitant]
     Active Substance: EPINEPHRINE
     Route: 042
     Dates: start: 20200909, end: 20200909
  43. NOREPINEPHRINE BITARTRATE [Concomitant]
     Active Substance: NOREPINEPHRINE BITARTRATE
     Route: 042
     Dates: start: 20200909, end: 20200909
  44. VASOPRESSIN [Concomitant]
     Active Substance: VASOPRESSIN
     Route: 042
     Dates: start: 20200909, end: 20200909
  45. VALPROATE SODIUM [Concomitant]
     Active Substance: VALPROATE SODIUM
     Route: 042
     Dates: start: 20200918, end: 20200925
  46. DEXTROSE AND SODIUM CHLORIDE [Concomitant]
     Active Substance: DEXTROSE MONOHYDRATE\SODIUM CHLORIDE
     Route: 042
     Dates: start: 20200811, end: 20200811
  47. DEXTROSE [Concomitant]
     Active Substance: DEXTROSE
     Route: 042
     Dates: start: 20200820, end: 20201004
  48. FENTANYL [Concomitant]
     Active Substance: FENTANYL
     Route: 042
     Dates: start: 20200730, end: 20201004
  49. FENTANYL [Concomitant]
     Active Substance: FENTANYL
     Route: 042
     Dates: start: 20200730, end: 20200914
  50. FENTANYL [Concomitant]
     Active Substance: FENTANYL
     Route: 042
     Dates: start: 20200909, end: 20200909
  51. DOBUTAMINE IN DEXTROSE [Concomitant]
     Active Substance: DOBUTAMINE HYDROCHLORIDE
     Route: 042
     Dates: start: 20200906, end: 20200908
  52. ADRENALIN [Concomitant]
     Active Substance: EPINEPHRINE
     Route: 042
     Dates: start: 20200731, end: 20200922
  53. DOCUSATE SODIUM [Concomitant]
     Active Substance: DOCUSATE SODIUM
     Route: 002
     Dates: start: 20200731, end: 20201013
  54. FLUCONAZOLE [Concomitant]
     Active Substance: FLUCONAZOLE
     Route: 042
     Dates: start: 20200807, end: 20200810
  55. RETACRIT [Concomitant]
     Active Substance: EPOETIN ALFA-EPBX
     Route: 042
     Dates: start: 20200806, end: 20200901
  56. ETOMIDATE [Concomitant]
     Active Substance: ETOMIDATE
     Route: 042
     Dates: start: 20200730, end: 20200730
  57. FLUCONAZOLE [Concomitant]
     Active Substance: FLUCONAZOLE
     Route: 002
     Dates: start: 20200830, end: 20200830
  58. FUROSEMIDE [Concomitant]
     Active Substance: FUROSEMIDE
     Route: 042
     Dates: start: 20200731, end: 20200818
  59. FLUDROCORTISONE ACETATE [Concomitant]
     Active Substance: FLUDROCORTISONE ACETATE
     Route: 002
     Dates: start: 20201012, end: 20201013
  60. K PHOS NEUTRAL [Concomitant]
     Active Substance: POTASSIUM PHOSPHATE, MONOBASIC\SODIUM PHOSPHATE, DIBASIC, ANHYDROUS\SODIUM PHOSPHATE, MONOBASIC, MON
     Route: 048
     Dates: start: 20200829, end: 20201007
  61. OMNIPAQUE [Concomitant]
     Active Substance: IOHEXOL
     Route: 042
     Dates: start: 20200805, end: 20200821
  62. HUMULIN N [Concomitant]
     Active Substance: INSULIN HUMAN
     Route: 042
     Dates: start: 20201007, end: 20201013
  63. HUMULIN R [Concomitant]
     Active Substance: INSULIN HUMAN
     Route: 042
     Dates: start: 20200820, end: 20200824
  64. HYDROMORPHONE HYDROCHLORIDE [Concomitant]
     Active Substance: HYDROMORPHONE HYDROCHLORIDE
     Route: 042
     Dates: start: 20200924, end: 20200928
  65. SOLU-CORTEF [Concomitant]
     Active Substance: HYDROCORTISONE SODIUM SUCCINATE
     Route: 042
     Dates: start: 20200922, end: 20201013
  66. HEPARIN SODIUM [Concomitant]
     Active Substance: HEPARIN SODIUM
     Route: 042
     Dates: start: 20200908, end: 20200908
  67. HALOPERIDOL DECANOATE [Concomitant]
     Active Substance: HALOPERIDOL DECANOATE
     Route: 042
     Dates: start: 20200912, end: 20200912
  68. HEPARIN SODIUM AND SODIUM CHLORIDE [Concomitant]
     Active Substance: HEPARIN SODIUM
     Route: 042
     Dates: start: 20200731, end: 20201013
  69. MIDAZOLAM HYDROCHLORIDE [Concomitant]
     Active Substance: MIDAZOLAM HYDROCHLORIDE
     Route: 042
     Dates: start: 20200808, end: 20200927
  70. MIDAZOLAM HYDROCHLORIDE [Concomitant]
     Active Substance: MIDAZOLAM HYDROCHLORIDE
     Route: 042
     Dates: start: 20200730, end: 20200927
  71. LORAZEPAM [Concomitant]
     Active Substance: LORAZEPAM
     Route: 042
     Dates: start: 20200821, end: 20200925
  72. XYLOCAINE(R) -MPF (LIDOCAINE HCI AND EPINEPHRINE) [Concomitant]
     Active Substance: EPINEPHRINE BITARTRATE\LIDOCAINE HYDROCHLORIDE ANHYDROUS
     Route: 042
     Dates: start: 20200802, end: 20201010
  73. LIDOCAINE PATCH [Concomitant]
     Active Substance: LIDOCAINE
     Route: 061
     Dates: start: 20200919, end: 20201013
  74. METOLAZONE [Concomitant]
     Active Substance: METOLAZONE
     Route: 002
     Dates: start: 20200803, end: 20200807
  75. MICAFUNGIN. [Concomitant]
     Active Substance: MICAFUNGIN SODIUM
     Route: 042
     Dates: start: 20200830, end: 20200908
  76. LACTATED RINGERS SOLUTION [Concomitant]
     Active Substance: CALCIUM CHLORIDE\POTASSIUM CHLORIDE\SODIUM CHLORIDE\SODIUM LACTATE
     Route: 042
     Dates: start: 20200807, end: 20200807
  77. LACTULOSE [Concomitant]
     Active Substance: LACTULOSE
     Route: 048
     Dates: start: 20200801, end: 20201013
  78. MAGNESIUM OXIDE 400MG [Concomitant]
     Active Substance: MAGNESIUM OXIDE
     Route: 048
     Dates: start: 20200922, end: 20200930
  79. METOCLOPRAMIDE HYDROCHLORIDE [Concomitant]
     Active Substance: METOCLOPRAMIDE HYDROCHLORIDE
     Route: 042
     Dates: start: 20200825, end: 20201004
  80. MEROPENEM AND SODIUM CHLORIDE [Concomitant]
     Active Substance: MEROPENEM\SODIUM CHLORIDE
     Route: 042
     Dates: start: 20200807, end: 20200929
  81. KETAMINE HYDROCHLORIDE [Concomitant]
     Active Substance: KETAMINE HYDROCHLORIDE
     Route: 042
     Dates: start: 20200824, end: 20200829
  82. VALGANCICLOVIR HYDROCHLORIDE [Concomitant]
     Active Substance: VALGANCICLOVIR HYDROCHLORIDE
     Route: 042
     Dates: start: 20201009, end: 20201013
  83. EPOPROSTENOL SODIUM [Concomitant]
     Active Substance: EPOPROSTENOL SODIUM
     Route: 042
     Dates: start: 20200731, end: 20200808
  84. GABAPENTIN [Concomitant]
     Active Substance: GABAPENTIN
     Route: 048
     Dates: start: 20201010, end: 20201013
  85. MUPIROCIN [Concomitant]
     Active Substance: MUPIROCIN
     Route: 045
     Dates: start: 20200808, end: 20200912
  86. MIDODRINE HYDROCHLORIDE [Concomitant]
     Active Substance: MIDODRINE HYDROCHLORIDE
     Route: 002
     Dates: start: 20200916, end: 20201007
  87. SODIUM CHLORIDE [Concomitant]
     Active Substance: SODIUM CHLORIDE
     Route: 042
     Dates: start: 20200805, end: 20200908
  88. SODIUM CHLORIDE [Concomitant]
     Active Substance: SODIUM CHLORIDE
     Route: 042
     Dates: start: 20200812, end: 20200812
  89. SODIUM PHOSPHATES [Concomitant]
     Active Substance: SODIUM PHOSPHATE, DIBASIC, ANHYDROUS\SODIUM PHOSPHATE, DIBASIC, HEPTAHYDRATE\SODIUM PHOSPHATE, MONOB
     Route: 042
     Dates: start: 20200826, end: 20201013
  90. SODIUM CHLORIDE [Concomitant]
     Active Substance: SODIUM CHLORIDE
     Route: 042
     Dates: start: 20200905, end: 20200906
  91. NOREPINEPHRINE BITARTRATE [Concomitant]
     Active Substance: NOREPINEPHRINE BITARTRATE
     Route: 042
     Dates: start: 20200814, end: 20201013
  92. NOREPINEPHRINE BITARTRATE [Concomitant]
     Active Substance: NOREPINEPHRINE BITARTRATE
     Route: 042
     Dates: start: 20200730, end: 20200806
  93. NOREPINEPHRINE BITARTRATE [Concomitant]
     Active Substance: NOREPINEPHRINE BITARTRATE
     Route: 042
     Dates: start: 20200808, end: 20200811
  94. REFRESH OPTIVE DROPS [Concomitant]
     Active Substance: CARBOXYMETHYLCELLULOSE SODIUM\GLYCERIN
     Route: 047
     Dates: start: 20200730, end: 20200730
  95. THIAMINE HYDROCHLORIDE [Concomitant]
     Active Substance: THIAMINE HYDROCHLORIDE
     Route: 042
     Dates: start: 20200825, end: 20200827
  96. LOKELMA [Concomitant]
     Active Substance: SODIUM ZIRCONIUM CYCLOSILICATE
     Dates: start: 20200731, end: 20200804
  97. TRANEXAMIC ACID [Concomitant]
     Active Substance: TRANEXAMIC ACID
     Route: 042
     Dates: start: 20200802, end: 20200802
  98. SUCRALFATE [Concomitant]
     Active Substance: SUCRALFATE
     Route: 048
     Dates: start: 20200824, end: 20200827
  99. ROXICODONE [Concomitant]
     Active Substance: OXYCODONE HYDROCHLORIDE
     Route: 002
     Dates: start: 20200821, end: 20201012
  100. EQUALINE OXYMETAZOLINE HCL NASAL DECONGESTANT NO DRIP [Concomitant]
     Active Substance: OXYMETAZOLINE HYDROCHLORIDE
     Route: 045
     Dates: start: 20200911, end: 20200911
  101. OXANDROLONE [Concomitant]
     Active Substance: OXANDROLONE
     Route: 002
     Dates: start: 20201010, end: 20201013
  102. OXYCODONE HYDROCHLORIDE [Concomitant]
     Active Substance: OXYCODONE HYDROCHLORIDE
     Route: 048
     Dates: start: 20200917, end: 20200930
  103. POTASSIUM CHLORIDE [Concomitant]
     Active Substance: POTASSIUM CHLORIDE
     Route: 042
     Dates: start: 20200808, end: 20200930
  104. PANTOPRAZOLE SODIUM [Concomitant]
     Active Substance: PANTOPRAZOLE SODIUM
     Route: 042
     Dates: start: 20200801, end: 20201013
  105. MIRALAX [Concomitant]
     Active Substance: POLYETHYLENE GLYCOL 3350
     Route: 048
     Dates: start: 20200731, end: 20201013
  106. PROPOFOL [Concomitant]
     Active Substance: PROPOFOL
     Route: 042
     Dates: start: 20200730, end: 20200824
  107. SODIUM BICARBONATE [Concomitant]
     Active Substance: SODIUM BICARBONATE
     Route: 042
     Dates: start: 20200805, end: 20200919
  108. SENNA [Concomitant]
     Active Substance: SENNA LEAF\SENNOSIDES\SENNOSIDES A AND B
     Route: 002
     Dates: start: 20201013, end: 20201013
  109. SENNA LIQUID [Concomitant]
     Active Substance: SENNOSIDES
     Route: 048
     Dates: start: 20200731, end: 20201012
  110. ROCURONIUM BROMIDE [Concomitant]
     Active Substance: ROCURONIUM BROMIDE
     Route: 042
     Dates: start: 20200730, end: 20200909
  111. QUETIAPINE [Concomitant]
     Active Substance: QUETIAPINE
     Route: 002
     Dates: start: 20200813, end: 20201013

REACTIONS (3)
  - Dizziness [Unknown]
  - Asthenia [Unknown]
  - Burkholderia test positive [Unknown]

NARRATIVE: CASE EVENT DATE: 20200721
